FAERS Safety Report 8483942-X (Version None)
Quarter: 2012Q2

REPORT INFORMATION
  Report Type: 
  Country: None (occurrence: None)
  Receive Date: 20120627
  Receipt Date: 20120627
  Transmission Date: 20120825
  Serious: No
  Sender: FDA-Public Use
  Company Number: None

PATIENT
  Age: 29 Year
  Sex: Female
  Weight: 64.8644 kg

DRUGS (2)
  1. LOESTRIN 24 FE [Suspect]
     Indication: CONTRACEPTION
     Dosage: 1 PILL DAILY PO
     Route: 048
     Dates: start: 20120527, end: 20120623
  2. LOESTRIN 24 FE [Suspect]
     Indication: CYST
     Dosage: 1 PILL DAILY PO
     Route: 048
     Dates: start: 20120527, end: 20120623

REACTIONS (2)
  - MENSTRUAL DISORDER [None]
  - PRODUCT QUALITY ISSUE [None]
